FAERS Safety Report 8411963 (Version 3)
Quarter: 2014Q2

REPORT INFORMATION
  Report Type: Report from Study
  Country: ES (occurrence: ES)
  Receive Date: 20120217
  Receipt Date: 20140513
  Transmission Date: 20141212
  Serious: Yes (Death, Life-Threatening, Hospitalization)
  Sender: FDA-Public Use
  Company Number: PHHO2011ES10358

PATIENT
  Sex: 0

DRUGS (6)
  1. GEMCITABINE [Suspect]
     Dosage: 1614 MG, UNK
     Dates: start: 20110601, end: 20110608
  2. CARBOPLATIN [Suspect]
     Dosage: 471.83 MG, UNK
     Dates: start: 20110601, end: 20110601
  3. BKM120 [Suspect]
     Indication: BREAST CANCER METASTATIC
     Dosage: 50 MG, QD
     Route: 048
     Dates: start: 20101214, end: 20110530
  4. HERCEPTIN [Suspect]
     Indication: BREAST CANCER METASTATIC
     Dosage: 2 MG/KG, QW
     Route: 042
     Dates: start: 20101207, end: 20110524
  5. HERCEPTIN [Suspect]
     Dosage: 402 MG, UNK
     Dates: start: 20110601, end: 20110601
  6. CHEMOTHERAPEUTICS NOS [Suspect]

REACTIONS (3)
  - Respiratory failure [Fatal]
  - Hypotension [Fatal]
  - Diarrhoea [Fatal]
